FAERS Safety Report 10411709 (Version 3)
Quarter: 2014Q3

REPORT INFORMATION
  Report Type: Report from Study
  Country: DE (occurrence: DE)
  Receive Date: 20140827
  Receipt Date: 20140911
  Transmission Date: 20150326
  Serious: Yes (Death)
  Sender: FDA-Public Use
  Company Number: DE-ROCHE-1448582

PATIENT
  Age: 80 Year
  Sex: Female
  Weight: 47.8 kg

DRUGS (27)
  1. BEVACIZUMAB [Suspect]
     Active Substance: BEVACIZUMAB
     Dosage: LAST DOSE PRIOR TO SAE: 05/AUG/2014
     Route: 042
     Dates: start: 20140805
  2. FOLINIC ACID [Concomitant]
     Active Substance: LEUCOVORIN
     Route: 065
     Dates: start: 20140218, end: 20140304
  3. FOLINIC ACID [Concomitant]
     Active Substance: LEUCOVORIN
     Route: 042
     Dates: start: 20140318, end: 20140513
  4. PANTOPRAZOLE [Concomitant]
     Active Substance: PANTOPRAZOLE SODIUM
     Indication: GASTRIC ULCER
  5. CAPECITABINE [Concomitant]
     Active Substance: CAPECITABINE
     Indication: COLORECTAL CANCER
     Route: 065
     Dates: start: 20131112, end: 20131125
  6. CAPECITABINE [Concomitant]
     Active Substance: CAPECITABINE
     Route: 065
     Dates: start: 20131202, end: 20131215
  7. PANTOPRAZOLE [Concomitant]
     Active Substance: PANTOPRAZOLE SODIUM
     Indication: DUODENAL ULCER
     Route: 065
     Dates: start: 2011
  8. METAMIZOL [Concomitant]
     Active Substance: METAMIZOLE SODIUM
     Indication: PAIN
     Route: 065
     Dates: start: 2011
  9. 5-FLUOROURACIL [Concomitant]
     Active Substance: FLUOROURACIL
     Route: 040
     Dates: start: 20140527, end: 20140624
  10. 5-FLUOROURACIL [Concomitant]
     Active Substance: FLUOROURACIL
     Route: 065
     Dates: start: 20140204, end: 20140206
  11. 5-FLUOROURACIL [Concomitant]
     Active Substance: FLUOROURACIL
     Route: 042
     Dates: start: 20140805, end: 20140807
  12. FOLINIC ACID [Concomitant]
     Active Substance: LEUCOVORIN
     Route: 042
     Dates: start: 20140722, end: 20140722
  13. IRINOTECAN [Concomitant]
     Active Substance: IRINOTECAN
     Indication: COLORECTAL CANCER
     Route: 042
     Dates: start: 20140805, end: 20140805
  14. 5-FLUOROURACIL [Concomitant]
     Active Substance: FLUOROURACIL
     Route: 040
     Dates: start: 20140722, end: 20140805
  15. FLUOXETINE [Concomitant]
     Active Substance: FLUOXETINE\FLUOXETINE HYDROCHLORIDE
     Indication: DEPRESSION
     Route: 065
     Dates: start: 2011
  16. BEVACIZUMAB [Suspect]
     Active Substance: BEVACIZUMAB
     Indication: COLORECTAL CANCER
     Route: 042
     Dates: start: 20131125, end: 20131125
  17. 5-FLUOROURACIL [Concomitant]
     Active Substance: FLUOROURACIL
     Indication: COLORECTAL CANCER
     Route: 040
     Dates: start: 20140122, end: 20140318
  18. 5-FLUOROURACIL [Concomitant]
     Active Substance: FLUOROURACIL
     Route: 065
     Dates: start: 20140218, end: 20140306
  19. 5-FLUOROURACIL [Concomitant]
     Active Substance: FLUOROURACIL
     Route: 042
     Dates: start: 20140318, end: 20140515
  20. CAPECITABINE [Concomitant]
     Active Substance: CAPECITABINE
     Route: 065
     Dates: start: 20131223, end: 20140105
  21. FOLINIC ACID [Concomitant]
     Active Substance: LEUCOVORIN
     Route: 042
     Dates: start: 20140805, end: 20140805
  22. 5-FLUOROURACIL [Concomitant]
     Active Substance: FLUOROURACIL
     Route: 042
     Dates: start: 20140527, end: 20140626
  23. FOLINIC ACID [Concomitant]
     Active Substance: LEUCOVORIN
     Indication: COLORECTAL CANCER
     Route: 065
     Dates: start: 20140122, end: 20140204
  24. FOLINIC ACID [Concomitant]
     Active Substance: LEUCOVORIN
     Route: 042
     Dates: start: 20140527, end: 20140624
  25. 5-FLUOROURACIL [Concomitant]
     Active Substance: FLUOROURACIL
     Route: 040
     Dates: start: 20140401, end: 20140513
  26. 5-FLUOROURACIL [Concomitant]
     Active Substance: FLUOROURACIL
     Route: 042
     Dates: start: 20140722, end: 20140724
  27. 5-FLUOROURACIL [Concomitant]
     Active Substance: FLUOROURACIL
     Route: 065
     Dates: start: 20140122, end: 20140124

REACTIONS (1)
  - Cardiac failure [Fatal]

NARRATIVE: CASE EVENT DATE: 20140811
